FAERS Safety Report 20758379 (Version 2)
Quarter: 2023Q1

REPORT INFORMATION
  Report Type: Spontaneous
  Country: US (occurrence: US)
  Receive Date: 20220427
  Receipt Date: 20230215
  Transmission Date: 20230417
  Serious: No
  Sender: FDA-Public Use
  Company Number: US-MYLANLABS-2022M1023597

PATIENT
  Sex: Female
  Weight: 63.5 kg

DRUGS (2)
  1. ESTRADIOL TRANSDERMAL SYSTEM [Suspect]
     Active Substance: ESTRADIOL
     Indication: Contraception
     Dosage: 0.0375 MILLIGRAM, QD (CHANGED ONCE-WEEKLY)
     Route: 062
     Dates: start: 20220110
  2. ESTRADIOL TRANSDERMAL SYSTEM [Suspect]
     Active Substance: ESTRADIOL
     Indication: Hormone level abnormal
     Dosage: 0.0375 MILLIGRAM, QD
     Route: 062

REACTIONS (4)
  - Hot flush [Recovered/Resolved]
  - Anxiety [Unknown]
  - Product adhesion issue [Unknown]
  - Wrong technique in product usage process [Unknown]
